FAERS Safety Report 25656324 (Version 2)
Quarter: 2025Q3

REPORT INFORMATION
  Report Type: Spontaneous
  Country: CA (occurrence: CA)
  Receive Date: 20250807
  Receipt Date: 20250807
  Transmission Date: 20251021
  Serious: Yes (Death, Hospitalization)
  Sender: PFIZER
  Company Number: CA-PFIZER INC-202500158493

PATIENT
  Age: 45 Year
  Sex: Female
  Weight: 47 kg

DRUGS (32)
  1. FRAGMIN [Suspect]
     Active Substance: DALTEPARIN SODIUM
     Indication: Thrombosis prophylaxis
     Dosage: 5000 IU, DAILY (EVERY 24H)
     Route: 042
  2. HEPARIN SODIUM [Suspect]
     Active Substance: HEPARIN SODIUM
     Indication: Thrombosis prophylaxis
     Dosage: 40 IU, DAILY (EVERY 24H)
     Route: 042
  3. ACETAMINOPHEN [Concomitant]
     Active Substance: ACETAMINOPHEN
  4. ACYCLOVIR [Concomitant]
     Active Substance: ACYCLOVIR
  5. AMLODIPINE [Concomitant]
     Active Substance: AMLODIPINE BESYLATE
  6. AZITHROMYCIN [Concomitant]
     Active Substance: AZITHROMYCIN
  7. CORTISOL MANAGER [Concomitant]
  8. CRESEMBA [Concomitant]
     Active Substance: ISAVUCONAZONIUM SULFATE
  9. DICYCLOMINE HYDROCHLORIDE [Concomitant]
     Active Substance: DICYCLOMINE HYDROCHLORIDE
  10. DULOXETINE HYDROCHLORIDE [Concomitant]
     Active Substance: DULOXETINE HYDROCHLORIDE
     Route: 048
  11. EPINEPHRINE [Concomitant]
     Active Substance: EPINEPHRINE
     Route: 030
  12. FAMOTIDINE [Concomitant]
     Active Substance: FAMOTIDINE
  13. FILGRASTIM [Concomitant]
     Active Substance: FILGRASTIM
  14. FUROSEMIDE [Concomitant]
     Active Substance: FUROSEMIDE
  15. HYDROCHLOROTHIAZIDE [Concomitant]
     Active Substance: HYDROCHLOROTHIAZIDE
  16. LORAZEPAM [Concomitant]
     Active Substance: LORAZEPAM
  17. MAGNESIUM OXIDE [Concomitant]
     Active Substance: MAGNESIUM OXIDE
  18. MEROPENEM [Concomitant]
     Active Substance: MEROPENEM
     Route: 042
  19. METHYLPREDNISOLONE [Concomitant]
     Active Substance: METHYLPREDNISOLONE
  20. METOLAZONE [Concomitant]
     Active Substance: METOLAZONE
  21. MILRINONE [Concomitant]
     Active Substance: MILRINONE
     Route: 042
  22. MORPHINE [Concomitant]
     Active Substance: MORPHINE
  23. OLANZAPINE [Concomitant]
     Active Substance: OLANZAPINE
  24. PANTOPRAZOLE [Concomitant]
     Active Substance: PANTOPRAZOLE
     Route: 042
  25. PHOSPHORUS [Concomitant]
     Active Substance: PHOSPHORUS
  26. POTASSIUM CHLORIDE [Concomitant]
     Active Substance: POTASSIUM CHLORIDE
  27. PREDNISONE [Concomitant]
     Active Substance: PREDNISONE
  28. SUCRALFATE [Concomitant]
     Active Substance: SUCRALFATE
     Route: 048
  29. TACROLIMUS [Concomitant]
     Active Substance: TACROLIMUS
  30. URSODIOL [Concomitant]
     Active Substance: URSODIOL
  31. VALACYCLOVIR [Concomitant]
     Active Substance: VALACYCLOVIR HYDROCHLORIDE
  32. VITAMIN C [Concomitant]
     Active Substance: ASCORBIC ACID

REACTIONS (4)
  - Graft versus host disease [Fatal]
  - Ulcer [Fatal]
  - Upper gastrointestinal haemorrhage [Fatal]
  - Off label use [Unknown]
